FAERS Safety Report 7617627-6 (Version None)
Quarter: 2011Q3

REPORT INFORMATION
  Report Type: 
  Country: None (occurrence: None)
  Receive Date: 20110718
  Receipt Date: 20090915
  Transmission Date: 20111222
  Serious: Yes (Hospitalization, Other)
  Sender: FDA-Public Use
  Company Number: GB-SANOFI-AVENTIS-200920603GDDC

PATIENT
  Age: 61 Year
  Sex: Male
  Weight: 103.2 kg

DRUGS (11)
  1. ACETAMINOPHEN [Concomitant]
     Dates: start: 19890101
  2. DEXAMETHASONE [Concomitant]
     Dates: start: 20090820
  3. TRAMADOL HCL [Concomitant]
     Dates: start: 19890101
  4. LEUCOVORIN CALCIUM [Suspect]
     Dosage: DOSE UNIT:  MG/M**2
     Route: 042
     Dates: start: 20090820, end: 20090820
  5. ONDANSETRON [Concomitant]
     Dates: start: 20090820
  6. AFLIBERCEPT [Suspect]
     Dosage: DOSE UNIT:  MG/KG
     Route: 042
     Dates: start: 20090820, end: 20090820
  7. METOCLOPRAMIDE [Concomitant]
     Dates: start: 20090820
  8. FLUOROURACIL [Suspect]
     Route: 042
     Dates: start: 20090820
  9. LOPERAMIDE [Concomitant]
     Dates: start: 20090820
  10. OXALIPLATIN [Suspect]
     Dosage: DOSE UNIT:  MG/M**2
     Route: 042
     Dates: start: 20090820, end: 20090820
  11. ALL OTHER THERAPEUTIC PRODUCTS [Concomitant]
     Dates: start: 20090820

REACTIONS (2)
  - PYODERMA GANGRENOSUM [None]
  - FOLLICULITIS [None]
